FAERS Safety Report 10053469 (Version 3)
Quarter: 2014Q2

REPORT INFORMATION
  Report Type: Spontaneous
  Country: JP (occurrence: JP)
  Receive Date: 20140402
  Receipt Date: 20140415
  Transmission Date: 20141212
  Serious: Yes (Hospitalization, Other)
  Sender: FDA-Public Use
  Company Number: JP-ASTRAZENECA-2014SE17633

PATIENT
  Age: 24105 Day
  Sex: Female
  Weight: 68 kg

DRUGS (20)
  1. NEXIUM [Suspect]
     Indication: ABDOMINAL DISCOMFORT
     Route: 048
     Dates: start: 20121221, end: 20130121
  2. SYMBICORT TURBUHALER [Suspect]
     Indication: ASTHMA
     Dosage: 2 DF EVERY DAY
     Route: 055
     Dates: start: 20120511, end: 20130201
  3. CLARITHROMYCIN [Suspect]
     Indication: ASTHMA
     Route: 048
     Dates: start: 20130104, end: 20130108
  4. SOL-MELCORT [Suspect]
     Indication: ASTHMA
     Route: 041
     Dates: start: 20130104, end: 20130104
  5. NEOPHYLLINE [Suspect]
     Indication: ASTHMA
     Route: 041
     Dates: start: 20130104, end: 20130104
  6. GASMOTIN [Suspect]
     Indication: ABDOMINAL DISCOMFORT
     Route: 048
     Dates: start: 20120821
  7. GASMOTIN [Suspect]
     Indication: ABDOMINAL DISCOMFORT
     Route: 048
     Dates: start: 20121221, end: 20130121
  8. REBAMIPIDE [Suspect]
     Indication: ABDOMINAL DISCOMFORT
     Route: 048
     Dates: start: 20120821
  9. REBAMIPIDE [Suspect]
     Indication: ABDOMINAL DISCOMFORT
     Route: 048
     Dates: start: 20121221, end: 20130121
  10. PRANLUKAST [Suspect]
     Indication: ASTHMA
     Route: 048
     Dates: start: 20130104, end: 20130108
  11. THEOLONG [Suspect]
     Indication: ASTHMA
     Route: 048
     Dates: start: 20130104, end: 20130108
  12. VENETLIN [Concomitant]
     Indication: ASTHMA
     Route: 055
     Dates: start: 20130104, end: 20130108
  13. STERI_NEB CROMOLYN [Concomitant]
     Indication: ASTHMA
     Route: 055
     Dates: start: 20130104, end: 20130108
  14. PREDONINE [Concomitant]
     Indication: ASTHMA
     Route: 048
     Dates: start: 20130104, end: 20130106
  15. RINDERON [Concomitant]
     Indication: ASTHMA
     Route: 048
     Dates: start: 20121231, end: 20130104
  16. AUGMENTIN [Concomitant]
     Indication: NASOPHARYNGITIS
     Route: 048
     Dates: start: 20121231, end: 20130104
  17. PL [Concomitant]
     Indication: NASOPHARYNGITIS
     Route: 048
     Dates: start: 20121231, end: 20130104
  18. NORVASC [Concomitant]
     Indication: HYPERTENSION
     Route: 048
  19. LOXOPROFEN [Concomitant]
     Indication: PAIN
     Dosage: AS REQUIRED
     Route: 048
  20. MYSLEE [Concomitant]
     Indication: INSOMNIA
     Route: 048
     Dates: end: 20130121

REACTIONS (9)
  - Hepatic steatosis [Unknown]
  - Pancreatic steatosis [Unknown]
  - Drug-induced liver injury [Recovered/Resolved]
  - Nasopharyngitis [Unknown]
  - Asthma [Unknown]
  - Gallbladder disorder [Unknown]
  - Obesity [Unknown]
  - Splenomegaly [Unknown]
  - Fibroma [Unknown]
